FAERS Safety Report 23553144 (Version 1)
Quarter: 2024Q1

REPORT INFORMATION
  Report Type: Spontaneous
  Country: NO (occurrence: None)
  Receive Date: 20240222
  Receipt Date: 20240222
  Transmission Date: 20240410
  Serious: Yes (Hospitalization)
  Sender: FDA-Public Use
  Company Number: None

PATIENT
  Age: 43 Year
  Sex: Female
  Weight: 77 kg

DRUGS (4)
  1. KADCYLA [Suspect]
     Active Substance: ADO-TRASTUZUMAB EMTANSINE
     Indication: Breast cancer
     Route: 065
     Dates: start: 202307, end: 20240201
  2. GOSERELIN [Concomitant]
     Active Substance: GOSERELIN
     Indication: Hormone suppression therapy
     Dates: start: 202307
  3. CALCIUM CARBONATE\CHOLECALCIFEROL [Concomitant]
     Active Substance: CALCIUM CARBONATE\CHOLECALCIFEROL
     Dosage: CALCIGRAN FORTE WITH D-VITAMIN
  4. LETROZOLE [Concomitant]
     Active Substance: LETROZOLE
     Indication: Hormone suppression therapy
     Dates: start: 202308

REACTIONS (7)
  - Impaired healing [Recovered/Resolved with Sequelae]
  - Neuropathy peripheral [Not Recovered/Not Resolved]
  - Arthritis [Recovering/Resolving]
  - Vision blurred [Recovering/Resolving]
  - Gait disturbance [Unknown]
  - Dactylitis [Unknown]
  - Pain in extremity [Unknown]

NARRATIVE: CASE EVENT DATE: 20230701
